FAERS Safety Report 7261844-4 (Version None)
Quarter: 2011Q1

REPORT INFORMATION
  Report Type: 
  Country: None (occurrence: None)
  Receive Date: 20110125
  Receipt Date: 20110125
  Transmission Date: 20110831
  Serious: No
  Sender: FDA-Public Use
  Company Number: None

PATIENT
  Sex: Female
  Weight: 52.1637 kg

DRUGS (3)
  1. BETASERON [Concomitant]
  2. TRIAD ALCOHOL PAD ALCOHOL PADS [Suspect]
  3. INTERFIERON [Concomitant]

REACTIONS (4)
  - RASH MACULAR [None]
  - SKIN WARM [None]
  - PAIN OF SKIN [None]
  - ERYTHEMA [None]
